FAERS Safety Report 24204776 (Version 1)
Quarter: 2024Q3

REPORT INFORMATION
  Report Type: Spontaneous
  Country: AR (occurrence: AR)
  Receive Date: 20240813
  Receipt Date: 20240813
  Transmission Date: 20241017
  Serious: Yes (Hospitalization, Other)
  Sender: MLV PHARMA
  Company Number: AR-MPL-000056

PATIENT
  Age: 43 Year
  Sex: Male

DRUGS (6)
  1. CLONAZEPAM [Suspect]
     Active Substance: CLONAZEPAM
     Indication: Impulse-control disorder
     Route: 065
  2. RASAGILINE [Concomitant]
     Active Substance: RASAGILINE\RASAGILINE MESYLATE
     Indication: Parkinson^s disease
     Route: 065
  3. CARBIDOPA\LEVODOPA [Concomitant]
     Active Substance: CARBIDOPA\LEVODOPA
     Indication: Parkinson^s disease
     Route: 065
  4. PAROXETINE [Concomitant]
     Active Substance: PAROXETINE
     Indication: Impulse-control disorder
     Route: 065
  5. ROPINIROLE [Suspect]
     Active Substance: ROPINIROLE
     Indication: Parkinson^s disease
     Route: 065
  6. ROPINIROLE [Suspect]
     Active Substance: ROPINIROLE
     Indication: Parkinson^s disease
     Route: 065

REACTIONS (9)
  - Suicide attempt [Unknown]
  - Dopamine agonist withdrawal syndrome [Unknown]
  - Drug ineffective [Unknown]
  - Depression [Unknown]
  - Anxiety [Unknown]
  - Agitation [Unknown]
  - Fatigue [Unknown]
  - Hypersexuality [Unknown]
  - Overdose [Unknown]
